FAERS Safety Report 6985974-7 (Version None)
Quarter: 2010Q3

REPORT INFORMATION
  Report Type: 
  Country: None (occurrence: None)
  Receive Date: 20100915
  Receipt Date: 20100907
  Transmission Date: 20110219
  Serious: Yes (Hospitalization, Other)
  Sender: FDA-Public Use
  Company Number: US-ELI_LILLY_AND_COMPANY-US201009002263

PATIENT
  Sex: Male

DRUGS (4)
  1. HUMULIN N [Suspect]
     Indication: DIABETES MELLITUS
     Dosage: 15 U, EACH MORNING
  2. HUMULIN N [Suspect]
     Dosage: 20 U, EACH EVENING
  3. HUMULIN N [Suspect]
     Dosage: UNK, UNKNOWN
  4. GLUCOTROL XL [Concomitant]
     Dosage: 10 MG, 2/D

REACTIONS (3)
  - INCORRECT DOSE ADMINISTERED [None]
  - OEDEMA [None]
  - RENAL FAILURE [None]
